FAERS Safety Report 8312401-X (Version None)
Quarter: 2012Q2

REPORT INFORMATION
  Report Type: 
  Country: None (occurrence: None)
  Receive Date: 20120425
  Receipt Date: 20120417
  Transmission Date: 20120825
  Serious: Yes (Other)
  Sender: FDA-Public Use
  Company Number: US-GILEAD-2012-0053732

PATIENT
  Age: 29 Year
  Sex: Female

DRUGS (3)
  1. PREZISTA [Suspect]
     Indication: MATERNAL EXPOSURE DURING PREGNANCY
     Dosage: 200 MG, QD
     Route: 048
     Dates: start: 20101016
  2. EMTRICITABINE AND TENOFOVIR DISOPROXIL FUMARATE [Suspect]
     Indication: MATERNAL EXPOSURE DURING PREGNANCY
     Dosage: 1 DF, QD
     Route: 048
     Dates: start: 20101016
  3. NORVIR [Suspect]
     Indication: MATERNAL EXPOSURE DURING PREGNANCY
     Dosage: 200 MG, QD
     Route: 048
     Dates: start: 20101016

REACTIONS (3)
  - PREGNANCY [None]
  - ECTOPIC PREGNANCY [None]
  - UTERINE MASS [None]
